FAERS Safety Report 5394852-9 (Version None)
Quarter: 2007Q3

REPORT INFORMATION
  Report Type: 
  Country: None (occurrence: None)
  Receive Date: 20070720
  Receipt Date: 20070525
  Transmission Date: 20080115
  Serious: Yes (Congenital Anomaly)
  Sender: FDA-Public Use
  Company Number: 2006EU002761

PATIENT
  Sex: Male
  Weight: 9.6 kg

DRUGS (11)
  1. PROTOPIC [Suspect]
     Dosage: 0.1%, BID, TRANSPLACENTAL
     Route: 064
     Dates: start: 20030901, end: 20031001
  2. PROTOPIC [Suspect]
     Dosage: 0.1%, BID, TRANSPLACENTAL
     Route: 064
     Dates: start: 20031101
  3. CITODON [Concomitant]
  4. FLAGYL [Concomitant]
  5. AMPICILLIN [Concomitant]
  6. HEXABOTIN [Concomitant]
  7. CLOTRIMAZOLE [Concomitant]
  8. LIDOCAIN [Concomitant]
  9. VALACYCLOVIR HCL [Concomitant]
  10. VOLTAREN [Concomitant]
  11. MORPHINE [Concomitant]

REACTIONS (4)
  - ABNORMAL BEHAVIOUR [None]
  - DISTURBANCE IN ATTENTION [None]
  - DRUG EXPOSURE DURING PREGNANCY [None]
  - GROWTH RETARDATION [None]
